FAERS Safety Report 4630111-7 (Version None)
Quarter: 2005Q2

REPORT INFORMATION
  Report Type: 
  Country: None (occurrence: None)
  Receive Date: 20050408
  Receipt Date: 20041126
  Transmission Date: 20051028
  Serious: Yes (Death, Life-Threatening, Hospitalization)
  Sender: FDA-Public Use
  Company Number: JP-GLAXOSMITHKLINE-B0358643A

PATIENT
  Age: 80 Year
  Sex: Female
  Weight: 41 kg

DRUGS (11)
  1. PAXIL [Suspect]
     Indication: DEPRESSION
     Dosage: 10MG PER DAY
     Route: 048
     Dates: start: 20041124, end: 20041125
  2. WARFARIN SODIUM [Concomitant]
     Indication: ACUTE MYOCARDIAL INFARCTION
     Dosage: 1MG PER DAY
     Route: 048
     Dates: start: 19990101, end: 20041125
  3. LASIX [Concomitant]
     Indication: CARDIAC FAILURE
     Dosage: 40MG PER DAY
     Route: 048
     Dates: start: 19990101, end: 20041125
  4. ALDACTONE A [Concomitant]
     Indication: CARDIAC FAILURE
     Route: 048
     Dates: start: 19990101, end: 20041125
  5. SLOW-K [Concomitant]
     Route: 048
     Dates: start: 19990101, end: 20041125
  6. EPADEL [Concomitant]
     Indication: PERIPHERAL CIRCULATORY FAILURE
     Dosage: 2CAP PER DAY
     Route: 048
     Dates: start: 19990101, end: 20041125
  7. NITOROL R [Concomitant]
     Indication: ANGINA PECTORIS
     Dosage: 2CAP PER DAY
     Route: 048
     Dates: start: 19990101, end: 20041125
  8. ECBARL [Concomitant]
     Indication: PERIPHERAL CIRCULATORY FAILURE
     Dosage: 2TAB PER DAY
     Route: 048
     Dates: start: 19990101, end: 20041125
  9. MECOBALAMIN [Concomitant]
     Indication: VITAMIN SUPPLEMENTATION
     Dosage: 3TAB PER DAY
     Route: 048
     Dates: start: 19990101, end: 20041125
  10. VANARL N [Concomitant]
     Indication: CEREBRAL CIRCULATORY FAILURE
     Dosage: 3CAP PER DAY
     Route: 048
     Dates: start: 19990101, end: 20041125
  11. EURODIN [Concomitant]
     Indication: INSOMNIA
     Route: 048
     Dates: start: 19990101, end: 20041125

REACTIONS (6)
  - ALANINE AMINOTRANSFERASE INCREASED [None]
  - ASPARTATE AMINOTRANSFERASE INCREASED [None]
  - BLOOD BILIRUBIN INCREASED [None]
  - CARDIAC FAILURE CHRONIC [None]
  - HEPATIC FUNCTION ABNORMAL [None]
  - PLATELET COUNT DECREASED [None]
